FAERS Safety Report 15664747 (Version 1)
Quarter: 2018Q4

REPORT INFORMATION
  Report Type: Spontaneous
  Country: US (occurrence: US)
  Receive Date: 20181128
  Receipt Date: 20181128
  Transmission Date: 20190205
  Serious: No
  Sender: FDA-Public Use
  Company Number: US-KERYX BIOPHARMACEUTICALS INC.-2018US004293

PATIENT
  Age: 68 Year
  Sex: Female
  Weight: 68.3 kg

DRUGS (3)
  1. VENOFER [Concomitant]
     Active Substance: IRON SUCROSE
     Dosage: 200 MG, ONE TIME DOSE
     Route: 042
     Dates: start: 20170511, end: 20170511
  2. AURYXIA [Suspect]
     Active Substance: TETRAFERRIC TRICITRATE DECAHYDRATE
     Indication: HYPERPHOSPHATAEMIA
     Dosage: 2 G (2 TABLETS), BID WITH MEALS
     Route: 048
     Dates: start: 20170517, end: 20180808
  3. VENOFER [Concomitant]
     Active Substance: IRON SUCROSE
     Dosage: 200 MG, ONE TIME DOSE
     Route: 042
     Dates: start: 20170425, end: 20170425

REACTIONS (4)
  - Blood iron increased [Unknown]
  - Transferrin saturation increased [Unknown]
  - Serum ferritin increased [Unknown]
  - Localised infection [Unknown]

NARRATIVE: CASE EVENT DATE: 20170827
